FAERS Safety Report 11388008 (Version 1)
Quarter: 2015Q3

REPORT INFORMATION
  Report Type: Spontaneous
  Country: US (occurrence: US)
  Receive Date: 20150817
  Receipt Date: 20150817
  Transmission Date: 20151125
  Serious: No
  Sender: FDA-Public Use
  Company Number: US-GLAXOSMITHKLINE-US2015GSK106318

PATIENT
  Age: 57 Year
  Sex: Male

DRUGS (1)
  1. VOTRIENT [Suspect]
     Active Substance: PAZOPANIB HYDROCHLORIDE

REACTIONS (3)
  - Hypertension [Recovering/Resolving]
  - Dysgeusia [Unknown]
  - Dry mouth [Unknown]

NARRATIVE: CASE EVENT DATE: 20150720
